FAERS Safety Report 19970119 (Version 1)
Quarter: 2021Q4

REPORT INFORMATION
  Report Type: Report from Study
  Country: MX (occurrence: MX)
  Receive Date: 20211019
  Receipt Date: 20211019
  Transmission Date: 20220303
  Serious: Yes (Other)
  Sender: FDA-Public Use
  Company Number: ALC2020MX002215

PATIENT
  Age: 75 Year
  Sex: Female
  Weight: 53 kg

DRUGS (4)
  1. SIMBRINZA [Suspect]
     Active Substance: BRIMONIDINE TARTRATE\BRINZOLAMIDE
     Indication: Intraocular pressure increased
     Dosage: 1 GTT, BID(STARTED 15 DAYS AGO)
     Route: 047
  2. TRAVATAN [Suspect]
     Active Substance: TRAVOPROST
     Indication: Product used for unknown indication
     Dosage: 1 GTT, QD (STARTED 3 YEARS AGO)
     Route: 047
  3. HYDROCHLOROTHIAZIDE\VALSARTAN [Suspect]
     Active Substance: HYDROCHLOROTHIAZIDE\VALSARTAN
     Indication: Blood pressure increased
     Dosage: 1 DF, QD APPROXIMATELY 18 YEARS AGO
     Route: 048
  4. DIOVAN [Suspect]
     Active Substance: VALSARTAN
     Indication: Blood pressure increased
     Dosage: 1 DF, QD APPROXIMATELY 18 YEARS AGO; ORAL
     Route: 048

REACTIONS (4)
  - Glaucoma [Recovering/Resolving]
  - Cataract [Recovering/Resolving]
  - Hypothyroidism [Unknown]
  - Intraocular pressure increased [Unknown]
